FAERS Safety Report 6505395-0 (Version None)
Quarter: 2009Q4

REPORT INFORMATION
  Report Type: 
  Country: None (occurrence: None)
  Receive Date: 20091217
  Receipt Date: 20091217
  Transmission Date: 20100525
  Serious: Yes (Hospitalization)
  Sender: FDA-Public Use
  Company Number: None

PATIENT
  Age: 55 Year
  Sex: Female
  Weight: 70.3075 kg

DRUGS (14)
  1. ALLOPURINOL [Suspect]
     Dates: start: 20080521, end: 20090623
  2. METOPROLOL TARTRATE [Concomitant]
  3. RESTORIL [Concomitant]
  4. NORVASC [Concomitant]
  5. HUMULIN R [Concomitant]
  6. INSULIN [Concomitant]
  7. NOVOLIN SINULIN [Concomitant]
  8. PROTONIX [Concomitant]
  9. COLACE ZOCOR [Concomitant]
  10. ZOLOFT [Concomitant]
  11. PALVIX [Concomitant]
  12. BENICAR [Concomitant]
  13. TRAZODONE HCL [Concomitant]
  14. ASPIRIN [Concomitant]

REACTIONS (8)
  - COUGH [None]
  - GENERAL PHYSICAL HEALTH DETERIORATION [None]
  - HAEMATOCRIT DECREASED [None]
  - HAEMODIALYSIS [None]
  - HAEMOGLOBIN DECREASED [None]
  - MALAISE [None]
  - PYREXIA [None]
  - RENAL FAILURE [None]
